FAERS Safety Report 4563962-8 (Version None)
Quarter: 2005Q1

REPORT INFORMATION
  Report Type: 
  Country: None (occurrence: None)
  Receive Date: 20050128
  Receipt Date: 20041216
  Transmission Date: 20050727
  Serious: Yes (Other)
  Sender: FDA-Public Use
  Company Number: PHNU2004DE04231

PATIENT
  Sex: Male
  Weight: 68 kg

DRUGS (1)
  1. GLEEVEC [Suspect]
     Indication: ACUTE LYMPHOCYTIC LEUKAEMIA
     Dosage: 200 MG, BID
     Route: 048
     Dates: start: 20040101

REACTIONS (6)
  - BIOPSY OESOPHAGUS [None]
  - DYSPHAGIA [None]
  - FOREIGN BODY TRAUMA [None]
  - OESOPHAGEAL ULCER [None]
  - OESOPHAGITIS ULCERATIVE [None]
  - OESOPHAGOSCOPY [None]
